FAERS Safety Report 8599091-6 (Version None)
Quarter: 2012Q3

REPORT INFORMATION
  Report Type: 
  Country: None (occurrence: None)
  Receive Date: 20120816
  Receipt Date: 20120810
  Transmission Date: 20120928
  Serious: Yes (Other)
  Sender: FDA-Public Use
  Company Number: US-TEVA-353273USA

PATIENT
  Sex: Female

DRUGS (1)
  1. CLOPIDOGREL [Suspect]
     Dates: start: 20120601

REACTIONS (5)
  - DRUG INEFFECTIVE [None]
  - ARTHRALGIA [None]
  - CORONARY ARTERY REOCCLUSION [None]
  - MUSCLE SPASMS [None]
  - GAIT DISTURBANCE [None]
